FAERS Safety Report 5624064-2 (Version None)
Quarter: 2008Q1

REPORT INFORMATION
  Report Type: 
  Country: None (occurrence: None)
  Receive Date: 20080213
  Receipt Date: 20070814
  Transmission Date: 20080703
  Serious: No
  Sender: FDA-Public Use
  Company Number: US-KINGPHARMUSA00001-K200701038

PATIENT

DRUGS (3)
  1. EPIPEN [Suspect]
     Indication: ARTHROPOD STING
     Dosage: .3 MG, 2 INJECTIONS
     Dates: start: 20070805, end: 20070805
  2. DICYCLOMINE  /00068601/ [Concomitant]
  3. ACETAMINOPHEN [Concomitant]

REACTIONS (4)
  - DIZZINESS [None]
  - LOSS OF CONSCIOUSNESS [None]
  - PAIN IN EXTREMITY [None]
  - SLEEP DISORDER [None]
